FAERS Safety Report 4943843-8 (Version None)
Quarter: 2006Q1

REPORT INFORMATION
  Report Type: 
  Country: None (occurrence: None)
  Receive Date: 20060310
  Receipt Date: 20060223
  Transmission Date: 20060701
  Serious: Yes (Other)
  Sender: FDA-Public Use
  Company Number: 2005BL006796

PATIENT
  Age: 15 Year
  Sex: Female
  Weight: 73.0291 kg

DRUGS (1)
  1. FLUOCINOLONE ACETONIDE [Suspect]
     Indication: CHOROIDITIS
     Dosage: 0.5 MILLIGRAMS; RIGHT EYE
     Dates: start: 20021127

REACTIONS (1)
  - RETINAL DETACHMENT [None]
